FAERS Safety Report 6354224-7 (Version None)
Quarter: 2009Q3

REPORT INFORMATION
  Report Type: 
  Country: None (occurrence: None)
  Receive Date: 20090914
  Receipt Date: 20090902
  Transmission Date: 20100115
  Serious: Yes (Other)
  Sender: FDA-Public Use
  Company Number: PHHY2009SE37764

PATIENT
  Sex: Female

DRUGS (2)
  1. ZOMETA [Suspect]
     Indication: NEOPLASM MALIGNANT
     Dosage: UNK
     Dates: start: 20030101, end: 20080101
  2. BONDRONAT [Suspect]
     Dosage: 50 MG/DAY
     Dates: start: 20080101, end: 20090720

REACTIONS (5)
  - FISTULA REPAIR [None]
  - OSTEONECROSIS [None]
  - POST PROCEDURAL FISTULA [None]
  - TOOTH EXTRACTION [None]
  - TOOTH INFECTION [None]
